FAERS Safety Report 4946866-8 (Version None)
Quarter: 2006Q1

REPORT INFORMATION
  Report Type: 
  Country: None (occurrence: None)
  Receive Date: 20060317
  Receipt Date: 20060309
  Transmission Date: 20060701
  Serious: Yes (Other)
  Sender: FDA-Public Use
  Company Number: 2006UW04330

PATIENT
  Age: 55 Year
  Sex: Male
  Weight: 81 kg

DRUGS (3)
  1. LOSEC [Suspect]
     Indication: HIATUS HERNIA
     Route: 048
     Dates: start: 20050101
  2. TENORETIC 100 [Concomitant]
     Indication: HYPERTENSION
     Route: 048
     Dates: end: 20060203
  3. CILASTATINA [Concomitant]
     Indication: HYPERCHOLESTEROLAEMIA
     Route: 048

REACTIONS (4)
  - ARTHRALGIA [None]
  - ERYTHEMA MULTIFORME [None]
  - EYELID OEDEMA [None]
  - PAIN IN EXTREMITY [None]
